FAERS Safety Report 9641779 (Version 1)
Quarter: 2013Q4

REPORT INFORMATION
  Report Type: Spontaneous
  Country: US (occurrence: US)
  Receive Date: 20131023
  Receipt Date: 20131023
  Transmission Date: 20140711
  Serious: Yes (Other)
  Sender: FDA-Public Use
  Company Number: US-TEVA-439887USA

PATIENT
  Sex: Female

DRUGS (1)
  1. ESTRACE [Suspect]

REACTIONS (14)
  - Multiple sclerosis [Unknown]
  - Pulmonary congestion [Unknown]
  - Croup infectious [Unknown]
  - Constipation [Unknown]
  - Migraine [Unknown]
  - Abnormal faeces [Unknown]
  - Urine output increased [Unknown]
  - Joint swelling [Unknown]
  - Erythema [Unknown]
  - Poor peripheral circulation [Unknown]
  - Eye inflammation [Unknown]
  - Rash [Unknown]
  - Product substitution issue [Unknown]
  - Product identification number issue [Unknown]
